FAERS Safety Report 8715461 (Version 3)
Quarter: 2013Q2

REPORT INFORMATION
  Report Type: Report from Study
  Country: DE (occurrence: DE)
  Receive Date: 20120809
  Receipt Date: 20130521
  Transmission Date: 20140414
  Serious: Yes (Hospitalization, Disabling)
  Sender: FDA-Public Use
  Company Number: DE-ROCHE-1094933

PATIENT
  Age: 78 Year
  Sex: Female
  Weight: 77.4 kg

DRUGS (9)
  1. VEMURAFENIB [Suspect]
     Indication: MALIGNANT MELANOMA
     Dosage: LAST DOSE PRIOR TO SAE: 27/JUL/2012
     Route: 048
     Dates: start: 20120210, end: 20120727
  2. AMLODIPIN [Concomitant]
     Route: 065
     Dates: start: 2005
  3. DELIX [Concomitant]
     Dosage: TDD: 2 X 5 MG
     Route: 065
     Dates: start: 2005
  4. ASS [Concomitant]
     Route: 065
     Dates: start: 2005
  5. SLOW SODIUM [Concomitant]
     Route: 065
     Dates: start: 20120306
  6. IDEOS [Concomitant]
     Dosage: TDD: 2X500/UNIT
     Route: 065
     Dates: start: 20120306
  7. PANTOZOL [Concomitant]
     Route: 065
     Dates: start: 20120306
  8. AREDIA [Concomitant]
     Route: 065
     Dates: start: 20111216
  9. PREDNISOLON [Concomitant]
     Route: 065
     Dates: start: 20120306

REACTIONS (1)
  - Retinal artery occlusion [Recovered/Resolved with Sequelae]
